FAERS Safety Report 9054835 (Version 1)
Quarter: 2013Q1

REPORT INFORMATION
  Report Type: Spontaneous
  Country: US (occurrence: US)
  Receive Date: 20130208
  Receipt Date: 20130208
  Transmission Date: 20140127
  Serious: Yes (Other)
  Sender: FDA-Public Use
  Company Number: US-JNJFOC-20130201824

PATIENT
  Sex: Male

DRUGS (3)
  1. XARELTO [Suspect]
     Indication: CEREBROVASCULAR ACCIDENT PROPHYLAXIS
     Route: 048
     Dates: start: 201301, end: 201301
  2. XARELTO [Suspect]
     Indication: CARDIAC ASSISTANCE DEVICE USER
     Route: 048
     Dates: start: 201301, end: 201301
  3. UNSPECIFIED BLOOD PRESSURE MEDS [Concomitant]
     Indication: HYPERTENSION
     Route: 065

REACTIONS (5)
  - Mouth haemorrhage [Recovered/Resolved]
  - Skin haemorrhage [Recovered/Resolved]
  - Haemorrhage [Recovered/Resolved]
  - Penile haemorrhage [Not Recovered/Not Resolved]
  - Acne [Recovered/Resolved]
